FAERS Safety Report 25394621 (Version 1)
Quarter: 2025Q2

REPORT INFORMATION
  Report Type: Report from Study
  Country: US (occurrence: US)
  Receive Date: 20250604
  Receipt Date: 20250604
  Transmission Date: 20250717
  Serious: Yes (Other)
  Sender: ABBVIE
  Company Number: US-ABBVIE-6307640

PATIENT
  Age: 77 Year
  Sex: Female

DRUGS (1)
  1. HUMIRA [Suspect]
     Active Substance: ADALIMUMAB
     Indication: Rheumatoid arthritis
     Route: 058
     Dates: start: 20240402

REACTIONS (4)
  - Hiatus hernia [Recovering/Resolving]
  - Injection site pain [Unknown]
  - Pulmonary pain [Unknown]
  - Cough [Unknown]

NARRATIVE: CASE EVENT DATE: 20250501
